FAERS Safety Report 7111469 (Version 5)
Quarter: 2013Q1

REPORT INFORMATION
  Report Type: Spontaneous
  Country: GB (occurrence: GB)
  Receive Date: 20090911
  Receipt Date: 20130321
  Transmission Date: 20140127
  Serious: Yes (Death, Hospitalization, Other)
  Sender: FDA-Public Use
  Company Number: GB-JNJFOC-20090802409

PATIENT
  Age: 82 Year
  Sex: Female

DRUGS (5)
  1. MOTRIN [Suspect]
     Indication: INTENTIONAL OVERDOSE
     Route: 048
  2. CO-CODAMOL [Suspect]
     Indication: INTENTIONAL OVERDOSE
     Route: 048
  3. CALCICHEW D3 FORTE [Suspect]
     Indication: PRODUCT USED FOR UNKNOWN INDICATION
     Route: 048
  4. ASPIRIN [Suspect]
     Indication: PRODUCT USED FOR UNKNOWN INDICATION
     Route: 065
  5. CO-AMILOFRUSE [Suspect]
     Indication: PRODUCT USED FOR UNKNOWN INDICATION
     Route: 065

REACTIONS (6)
  - Suicide attempt [Unknown]
  - Intentional overdose [Unknown]
  - Vascular anomaly [Fatal]
  - Alanine aminotransferase increased [Unknown]
  - Blood alkaline phosphatase increased [Unknown]
  - Prothrombin level increased [Unknown]
